FAERS Safety Report 5401927-4 (Version None)
Quarter: 2007Q3

REPORT INFORMATION
  Report Type: 
  Country: None (occurrence: None)
  Receive Date: 20070726
  Receipt Date: 20070719
  Transmission Date: 20080115
  Serious: Yes (Hospitalization)
  Sender: FDA-Public Use
  Company Number: 6035422

PATIENT
  Age: 84 Year
  Sex: Male

DRUGS (6)
  1. CARDENSIEL (TABLET) (BISOPROLOL FUMARATE) [Suspect]
     Indication: DRUG USE FOR UNKNOWN INDICATION
     Dosage: 2,5 MG (2,5 MG, 1 D)
     Route: 048
     Dates: start: 20070101
  2. ANDROCUR (TABLET) (CYPROTERONE ACETATE) [Suspect]
     Indication: DRUG USE FOR UNKNOWN INDICATION
     Dosage: 100 MG (100 MG, 1 IN 1 D)
     Route: 048
     Dates: start: 20070201, end: 20070511
  3. LASIX [Suspect]
     Indication: DRUG USE FOR UNKNOWN INDICATION
     Dosage: 20 MG (20 MG, 1 IN 1 D)
     Route: 048
     Dates: end: 20070510
  4. SINTROM (TABLET) (ACENOCOUMAROL) [Suspect]
     Indication: DRUG USE FOR UNKNOWN INDICATION
     Dosage: 4 MG (4 MG, 1 D)
     Route: 048
     Dates: start: 20020101
  5. CORDARONE [Suspect]
     Indication: DRUG USE FOR UNKNOWN INDICATION
     Dosage: 200 MG (200 MG, 1 D)
     Route: 048
     Dates: start: 20020101
  6. COVERSYL (TABLET) (PERINDOPRIL) [Suspect]
     Indication: DRUG USE FOR UNKNOWN INDICATION
     Dosage: 4 MG (4 MG, 1 D)
     Route: 048
     Dates: start: 20070101

REACTIONS (2)
  - AORTIC ANEURYSM [None]
  - HEPATITIS CHOLESTATIC [None]
